FAERS Safety Report 21135216 (Version 1)
Quarter: 2022Q3

REPORT INFORMATION
  Report Type: Spontaneous
  Country: AT (occurrence: AT)
  Receive Date: 20220727
  Receipt Date: 20220727
  Transmission Date: 20221027
  Serious: Yes (Death, Other)
  Sender: FDA-Public Use
  Company Number: AT-CELLTRION INC.-2022AT011901

PATIENT

DRUGS (1)
  1. RITUXIMAB [Suspect]
     Active Substance: RITUXIMAB
     Indication: Myasthenia gravis
     Dosage: 2 X 500 MG WITHIN 2 WEEKS, AND MAINTENANCE THERAPY WITH REPEATED INFUSIONS.
     Route: 065

REACTIONS (3)
  - COVID-19 pneumonia [Fatal]
  - B-lymphocyte count decreased [Unknown]
  - Off label use [Unknown]
